FAERS Safety Report 9808408 (Version 1)
Quarter: 2014Q1

REPORT INFORMATION
  Report Type: Spontaneous
  Country: US (occurrence: US)
  Receive Date: 20140110
  Receipt Date: 20140110
  Transmission Date: 20141002
  Serious: Yes (Death)
  Sender: FDA-Public Use
  Company Number: US-ASTRAZENECA-2014SE01302

PATIENT
  Age: 27 Year
  Sex: Male

DRUGS (4)
  1. ANASTRAZOLE [Suspect]
     Route: 048
  2. CLENBUTEROL [Suspect]
     Route: 065
  3. THYROID PREPARATIONS [Suspect]
     Route: 065
  4. TESTOSTERONE [Suspect]
     Route: 065

REACTIONS (2)
  - Toxicity to various agents [Fatal]
  - Intentional drug misuse [Fatal]
